FAERS Safety Report 16961071 (Version 4)
Quarter: 2022Q2

REPORT INFORMATION
  Report Type: Report from Study
  Country: US (occurrence: None)
  Receive Date: 20191025
  Receipt Date: 20220420
  Transmission Date: 20220721
  Serious: Yes (Hospitalization, Other)
  Sender: FDA-Public Use
  Company Number: US-ROCHE-2444260

PATIENT
  Age: 67 Year
  Sex: Male
  Weight: 94.8 kg

DRUGS (35)
  1. VENETOCLAX [Suspect]
     Active Substance: VENETOCLAX
     Indication: Lymphoma
     Dosage: VENETOCLAX WILL BE ADMINISTERED ON 22/MAY/2019 ORALLY ON DAYS 3-12 IN CYCLE 1, AND DAYS 1-10 WITH AL
     Route: 048
     Dates: end: 20190526
  2. RITUXIMAB [Suspect]
     Active Substance: RITUXIMAB
     Indication: Lymphoma
     Dosage: RITUXIMAB WILL BE ADMINISTERED ON 22/MAY/2019 AS AN IV INFUSION AT 375 MG/M2 ON DAY 1 OF EACH CYCLE
     Route: 041
     Dates: end: 20190526
  3. ETOPOSIDE [Suspect]
     Active Substance: ETOPOSIDE
     Indication: Lymphoma
     Dosage: FIRST DOSE ADMINISTERED ON 22/MAY/2019
     Route: 042
     Dates: end: 20190526
  4. PREDNISONE [Suspect]
     Active Substance: PREDNISONE
     Indication: Lymphoma
     Dosage: FIRST DOSE ADMINISTERED ON 22/MAY/2019
     Route: 048
     Dates: end: 20190526
  5. VINCRISTINE [Suspect]
     Active Substance: VINCRISTINE
     Indication: Lymphoma
     Dosage: FIRST DOSE ADMINISTERED ON 22/MAY/2019
     Route: 042
     Dates: end: 20190526
  6. CYCLOPHOSPHAMIDE [Suspect]
     Active Substance: CYCLOPHOSPHAMIDE
     Indication: Lymphoma
     Dosage: FIRST DOSE ADMINISTERED ON 22/MAY/2019
     Route: 042
     Dates: end: 20190526
  7. DOXORUBICIN [Suspect]
     Active Substance: DOXORUBICIN
     Indication: Lymphoma
     Dosage: FIRST DOSE ADMINISTERED ON 22/MAY/2019
     Route: 042
     Dates: end: 20190526
  8. CRESTOR [Concomitant]
     Active Substance: ROSUVASTATIN CALCIUM
     Route: 048
  9. ACYCLOVIR [Concomitant]
     Active Substance: ACYCLOVIR
     Route: 048
  10. ALLOPURINOL [Concomitant]
     Active Substance: ALLOPURINOL
  11. AMLODIPINE [Concomitant]
     Active Substance: AMLODIPINE BESYLATE
     Dosage: 2 TABLETS
     Route: 048
  12. AUGMENTIN [Concomitant]
     Active Substance: AMOXICILLIN\CLAVULANATE POTASSIUM
  13. LIPITOR [Concomitant]
     Active Substance: ATORVASTATIN CALCIUM
  14. CLONIDINE [Concomitant]
     Active Substance: CLONIDINE
  15. HYDRALAZINE [Concomitant]
     Active Substance: HYDRALAZINE HYDROCHLORIDE
  16. ATIVAN [Concomitant]
     Active Substance: LORAZEPAM
  17. LOSARTAN [Concomitant]
     Active Substance: LOSARTAN
  18. OMEPRAZOLE [Concomitant]
     Active Substance: OMEPRAZOLE
  19. LASIX [Concomitant]
     Active Substance: FUROSEMIDE
  20. ZOFRAN [Concomitant]
     Active Substance: ONDANSETRON HYDROCHLORIDE
     Route: 042
  21. ACETAMINOPHEN [Concomitant]
     Active Substance: ACETAMINOPHEN
  22. ALBUTEROL [Concomitant]
     Active Substance: ALBUTEROL
     Dosage: 2 PUFFS
     Route: 055
  23. CARVEDILOL [Concomitant]
     Active Substance: CARVEDILOL
  24. CHOLECALCIFEROL [Concomitant]
     Active Substance: CHOLECALCIFEROL
     Dosage: 12.5*2
     Route: 048
  25. FUROSEMIDE [Concomitant]
     Active Substance: FUROSEMIDE
     Route: 048
  26. NORCO [Concomitant]
     Active Substance: ACETAMINOPHEN\HYDROCODONE BITARTRATE
     Dosage: 5/325 MG
  27. NITROGLYCERIN [Concomitant]
     Active Substance: NITROGLYCERIN
     Route: 048
  28. OMEPRAZOLE [Concomitant]
     Active Substance: OMEPRAZOLE
     Route: 048
  29. ONDANSETRON [Concomitant]
     Active Substance: ONDANSETRON
     Route: 048
  30. MIRALAX [Concomitant]
     Active Substance: POLYETHYLENE GLYCOL 3350
  31. UROCIT-K [Concomitant]
     Active Substance: POTASSIUM CITRATE
  32. COMPAZINE [Concomitant]
     Active Substance: PROCHLORPERAZINE MALEATE
     Route: 048
  33. ALDACTONE [Concomitant]
     Active Substance: SPIRONOLACTONE
     Route: 048
  34. BACTRIM DS [Concomitant]
     Active Substance: SULFAMETHOXAZOLE\TRIMETHOPRIM
     Dosage: 800-160 MG
     Route: 048
  35. DESYREL [Concomitant]
     Active Substance: TRAZODONE HYDROCHLORIDE
     Route: 048

REACTIONS (7)
  - Haemorrhage intracranial [Recovered/Resolved]
  - Thrombocytopenia [Unknown]
  - Pancytopenia [Unknown]
  - Lymphocyte count decreased [Not Recovered/Not Resolved]
  - Neutrophil count decreased [Recovered/Resolved]
  - White blood cell count decreased [Recovered/Resolved]
  - Platelet count decreased [Recovered/Resolved]

NARRATIVE: CASE EVENT DATE: 20190226
